FAERS Safety Report 11529694 (Version 1)
Quarter: 2015Q3

REPORT INFORMATION
  Report Type: Other
  Country: GB (occurrence: GB)
  Receive Date: 20150921
  Receipt Date: 20150921
  Transmission Date: 20151125
  Serious: Yes (Other)
  Sender: FDA-Public Use
  Company Number: GB-MYLANLABS-2015M1030546

PATIENT

DRUGS (3)
  1. LACTULOSE. [Concomitant]
     Active Substance: LACTULOSE
     Dosage: 15 ML, BID
     Dates: start: 20150824
  2. FYBOGEL [Concomitant]
     Active Substance: PLANTAGO OVATA SEED
     Dosage: 1 DF, BID
     Dates: start: 20150807
  3. DOXYCYCLINE. [Suspect]
     Active Substance: DOXYCYCLINE
     Indication: DIVERTICULITIS
     Dosage: 200 MG, UNK

REACTIONS (4)
  - Dizziness [Recovered/Resolved]
  - Hyperhidrosis [Recovered/Resolved]
  - Hypotension [Recovered/Resolved]
  - Nausea [Recovered/Resolved]

NARRATIVE: CASE EVENT DATE: 20150824
